FAERS Safety Report 25988320 (Version 1)
Quarter: 2025Q4

REPORT INFORMATION
  Report Type: Spontaneous
  Country: EU (occurrence: EU)
  Receive Date: 20251103
  Receipt Date: 20251103
  Transmission Date: 20260117
  Serious: Yes (Other)
  Sender: ORGANON
  Company Number: None

PATIENT
  Age: 6 Year
  Sex: Male

DRUGS (2)
  1. DESLORATADINE [Suspect]
     Active Substance: DESLORATADINE
     Indication: Hypersensitivity
     Dosage: 5 MILLIGRAM, Q2M
     Dates: start: 202404
  2. APIS MELLIFERA VENOM [Suspect]
     Active Substance: APIS MELLIFERA VENOM
     Indication: Immune tolerance induction
     Dosage: 120 INTERNATIONAL UNIT PER GRAM (FORMULATION: POWDER AND SOLVENT FOR SOLUTION FOR INJECTION)
     Dates: start: 202404

REACTIONS (2)
  - Disturbance in attention [Not Recovered/Not Resolved]
  - Product use in unapproved indication [Unknown]

NARRATIVE: CASE EVENT DATE: 20240101
